FAERS Safety Report 5103435-7 (Version None)
Quarter: 2006Q3

REPORT INFORMATION
  Report Type: 
  Country: None (occurrence: None)
  Receive Date: 20060908
  Receipt Date: 20060828
  Transmission Date: 20061208
  Serious: Yes (Other)
  Sender: FDA-Public Use
  Company Number: 2006105018

PATIENT
  Sex: Female

DRUGS (2)
  1. PROVERA [Suspect]
     Indication: HORMONE REPLACEMENT THERAPY
     Dosage: ORAL
     Dates: start: 19880101, end: 20000601
  2. PREMARIN [Suspect]
     Indication: HORMONE REPLACEMENT THERAPY
     Dates: start: 19880101, end: 20000601

REACTIONS (1)
  - BREAST CANCER FEMALE [None]
